FAERS Safety Report 6893801-1 (Version None)
Quarter: 2010Q3

REPORT INFORMATION
  Report Type: 
  Country: None (occurrence: None)
  Receive Date: 20100802
  Receipt Date: 20100726
  Transmission Date: 20110219
  Serious: Yes (Hospitalization)
  Sender: FDA-Public Use
  Company Number: 2009BI042366

PATIENT
  Age: 43 Year
  Sex: Female
  Weight: 99 kg

DRUGS (5)
  1. TYSABRI [Suspect]
     Indication: MULTIPLE SCLEROSIS
     Route: 042
     Dates: start: 20081009, end: 20100301
  2. NEURONTIN [Concomitant]
     Indication: NEURALGIA
  3. CLONAZEPAM [Concomitant]
     Indication: ANXIETY
  4. ELAVIL [Concomitant]
     Indication: NEURALGIA
     Dates: start: 20080801
  5. PRILOSEC [Concomitant]
     Indication: GASTRIC ULCER

REACTIONS (31)
  - ABASIA [None]
  - ACETABULUM FRACTURE [None]
  - ASPIRATION [None]
  - ASTHENIA [None]
  - BALANCE DISORDER [None]
  - BLADDER SPASM [None]
  - BLOOD CHOLESTEROL INCREASED [None]
  - CATHETER SITE INFECTION [None]
  - CONCUSSION [None]
  - DEHYDRATION [None]
  - DIPLOPIA [None]
  - DYSPHAGIA [None]
  - FALL [None]
  - FATIGUE [None]
  - FUNGAL INFECTION [None]
  - GAIT DISTURBANCE [None]
  - GASTROINTESTINAL DISORDER [None]
  - HERPES VIRUS INFECTION [None]
  - KLEBSIELLA TEST POSITIVE [None]
  - LARYNGITIS [None]
  - LOWER LIMB FRACTURE [None]
  - MULTIPLE SCLEROSIS [None]
  - MUSCLE SPASTICITY [None]
  - PAIN IN EXTREMITY [None]
  - PERONEAL NERVE PALSY [None]
  - PNEUMONIA ASPIRATION [None]
  - PYREXIA [None]
  - TACHYCARDIA [None]
  - URINARY TRACT INFECTION [None]
  - VITAMIN D DECREASED [None]
  - WHITE BLOOD CELL COUNT INCREASED [None]
